FAERS Safety Report 7069897-3 (Version None)
Quarter: 2010Q4

REPORT INFORMATION
  Report Type: 
  Country: None (occurrence: None)
  Receive Date: 20101028
  Receipt Date: 20100628
  Transmission Date: 20110411
  Serious: No
  Sender: FDA-Public Use
  Company Number: US-WYE-H16217910

PATIENT
  Sex: Female

DRUGS (2)
  1. ADVIL [Suspect]
     Indication: NEPHROLITHIASIS
     Dosage: 3 TABLETS PRN
     Route: 048
     Dates: start: 20100501
  2. ADVIL [Suspect]
     Indication: PAIN

REACTIONS (2)
  - ABDOMINAL DISCOMFORT [None]
  - DIARRHOEA [None]
